FAERS Safety Report 6672615-1 (Version None)
Quarter: 2010Q2

REPORT INFORMATION
  Report Type: 
  Country: None (occurrence: None)
  Receive Date: 20100408
  Receipt Date: 20100330
  Transmission Date: 20101027
  Serious: Yes (Other)
  Sender: FDA-Public Use
  Company Number: US-JNJFOC-20100400492

PATIENT
  Age: 50 Year
  Sex: Female
  Weight: 81.65 kg

DRUGS (2)
  1. TYLENOL SINUS SEVERE CONGESTION COOL BURST [Suspect]
     Indication: CHRONIC SINUSITIS
     Route: 048
  2. SEPTRA [Concomitant]
     Indication: SINUSITIS

REACTIONS (1)
  - OPERATIVE HAEMORRHAGE [None]
